FAERS Safety Report 24093923 (Version 5)
Quarter: 2024Q3

REPORT INFORMATION
  Report Type: Spontaneous
  Country: BR (occurrence: BR)
  Receive Date: 20240716
  Receipt Date: 20240924
  Transmission Date: 20241017
  Serious: Yes (Death, Other)
  Sender: GENMAB
  Company Number: BR-GENMAB-2024-02095

PATIENT

DRUGS (3)
  1. EPCORITAMAB [Suspect]
     Active Substance: EPCORITAMAB
     Indication: Diffuse large B-cell lymphoma
     Dosage: 48 MILLIGRAM (C1D1 (CYCLE 1 COMPLETED))
     Route: 058
  2. EPCORITAMAB [Suspect]
     Active Substance: EPCORITAMAB
     Dosage: 48 MILLIGRAM (C1D8)
     Route: 058
  3. EPCORITAMAB [Suspect]
     Active Substance: EPCORITAMAB
     Dosage: C1D15
     Route: 058

REACTIONS (5)
  - Diffuse large B-cell lymphoma [Fatal]
  - Hypoxia [Unknown]
  - Hypotension [Unknown]
  - Cytokine release syndrome [Unknown]
  - Pyrexia [Unknown]
